FAERS Safety Report 6401652-7 (Version None)
Quarter: 2009Q4

REPORT INFORMATION
  Report Type: 
  Country: None (occurrence: None)
  Receive Date: 20091015
  Receipt Date: 20091002
  Transmission Date: 20100525
  Serious: Yes (Death)
  Sender: FDA-Public Use
  Company Number: ES-JNJFOC-20091001459

PATIENT
  Age: 6 Year
  Sex: Male

DRUGS (2)
  1. REMICADE [Suspect]
     Indication: GRANULOMA
     Route: 042
  2. REMICADE [Suspect]
     Indication: IMMUNODEFICIENCY
     Route: 042

REACTIONS (2)
  - GRANULOMA [None]
  - IMMUNODEFICIENCY [None]
